FAERS Safety Report 6128394-X (Version None)
Quarter: 2009Q1

REPORT INFORMATION
  Report Type: 
  Country: None (occurrence: None)
  Receive Date: 20090323
  Receipt Date: 20090309
  Transmission Date: 20090719
  Serious: Yes (Death)
  Sender: FDA-Public Use
  Company Number: US-ROCHE-622101

PATIENT

DRUGS (7)
  1. TICLOPIDINE HCL [Suspect]
     Indication: ANTIPLATELET THERAPY
     Dosage: INITIAL DOSE IMMEDIATELY BEFORE STENT IMPLANTATION PROCEDURE
     Route: 065
  2. TICLOPIDINE HCL [Suspect]
     Dosage: ADMINISTERED ON THE EVENING OF STENT IMPLANTATION
     Route: 065
  3. HEPARIN SODIUM [Suspect]
     Indication: DRUG USE FOR UNKNOWN INDICATION
     Dosage: WEIGHT ADJUSTED BOLUS OF HEPARIN (100 U/KG); ROUTE: BOLUS
     Route: 050
  4. HEPARIN SODIUM [Suspect]
     Dosage: CLOTTING TIME OF 200 TO 300 SECONDS
     Route: 050
  5. ASPIRIN [Suspect]
     Indication: ANTIPLATELET THERAPY
     Dosage: DOSE: GREATER THANE EQUAL TO 325 MG BEFORE OR DURING THE PROCEDURE
     Route: 065
  6. ABCIXIMAB [Suspect]
     Indication: DRUG USE FOR UNKNOWN INDICATION
     Route: 040
  7. ABCIXIMAB [Suspect]
     Dosage: DOSE: .10 UG/MIN CONTINUOUS INFUSION FOR 12 HOURS.
     Route: 040

REACTIONS (1)
  - PULMONARY HAEMORRHAGE [None]
